FAERS Safety Report 7885072-4 (Version None)
Quarter: 2011Q4

REPORT INFORMATION
  Report Type: 
  Country: None (occurrence: None)
  Receive Date: 20111102
  Receipt Date: 20111026
  Transmission Date: 20120403
  Serious: Yes (Hospitalization)
  Sender: FDA-Public Use
  Company Number: US-BRISTOL-MYERS SQUIBB COMPANY-16198343

PATIENT
  Age: 21 Year
  Sex: Male

DRUGS (3)
  1. LOVENOX [Concomitant]
  2. COUMADIN [Suspect]
  3. DILANTIN [Suspect]

REACTIONS (2)
  - CONVULSION [None]
  - ANTICONVULSANT DRUG LEVEL DECREASED [None]
